FAERS Safety Report 4460362-6 (Version None)
Quarter: 2004Q3

REPORT INFORMATION
  Report Type: 
  Country: None (occurrence: None)
  Receive Date: 20040928
  Receipt Date: 20040412
  Transmission Date: 20050211
  Serious: No
  Sender: FDA-Public Use
  Company Number: US-GLAXOSMITHKLINE-A0506818A

PATIENT
  Sex: Male

DRUGS (5)
  1. SEREVENT [Suspect]
     Indication: ASTHMA
     Dosage: 50MCG TWICE PER DAY
     Route: 055
  2. PULMICORT [Concomitant]
     Dosage: 4PUFF TWICE PER DAY
  3. SINGULAIR [Concomitant]
  4. ALLEGRA-D [Concomitant]
  5. ALBUTEROL [Concomitant]
     Route: 055

REACTIONS (1)
  - DRUG INEFFECTIVE [None]
